FAERS Safety Report 12632674 (Version 2)
Quarter: 2016Q3

REPORT INFORMATION
  Report Type: Spontaneous
  Country: US (occurrence: US)
  Receive Date: 20160808
  Receipt Date: 20160808
  Transmission Date: 20161109
  Serious: No
  Sender: FDA-Public Use
  Company Number: US-BEH-2015056488

PATIENT
  Sex: Female
  Weight: 85 kg

DRUGS (17)
  1. ARMOUR THYROID [Concomitant]
     Active Substance: THYROID, PORCINE
  2. EPIPEN [Concomitant]
     Active Substance: EPINEPHRINE
  3. PROGESTERONE. [Concomitant]
     Active Substance: PROGESTERONE
  4. DIPHENHYDRAMINE. [Concomitant]
     Active Substance: DIPHENHYDRAMINE
  5. WELLBUTRIN SR [Concomitant]
     Active Substance: BUPROPION HYDROCHLORIDE
  6. ATENOLOL-CHLORTHALIDONE [Concomitant]
  7. PROAIR HFA [Concomitant]
     Active Substance: ALBUTEROL SULFATE
  8. DIAZEPAM. [Concomitant]
     Active Substance: DIAZEPAM
  9. MORPHINE [Concomitant]
     Active Substance: MORPHINE
  10. VIVELLE-DOT [Concomitant]
     Active Substance: ESTRADIOL
  11. TESTOSTERONE. [Concomitant]
     Active Substance: TESTOSTERONE
  12. HIZENTRA [Suspect]
     Active Substance: HUMAN IMMUNOGLOBULIN G
     Indication: MIGRAINE
     Route: 058
  13. PROMETRIUM [Concomitant]
     Active Substance: PROGESTERONE
  14. DEPLIN-ALGAL OIL [Concomitant]
  15. ACETAMINOPHEN. [Concomitant]
     Active Substance: ACETAMINOPHEN
  16. LIPITOR [Concomitant]
     Active Substance: ATORVASTATIN CALCIUM
  17. OMEPRAZOLE. [Concomitant]
     Active Substance: OMEPRAZOLE

REACTIONS (1)
  - Injection site erythema [Unknown]
